FAERS Safety Report 8261650-8 (Version None)
Quarter: 2012Q2

REPORT INFORMATION
  Report Type: 
  Country: None (occurrence: None)
  Receive Date: 20120405
  Receipt Date: 20120405
  Transmission Date: 20120825
  Serious: Yes (Other)
  Sender: FDA-Public Use
  Company Number: None

PATIENT
  Sex: Female
  Weight: 76.657 kg

DRUGS (1)
  1. ADACEL [Suspect]
     Indication: IMMUNISATION
     Dosage: 0.5MG
     Route: 030
     Dates: start: 20120326, end: 20120326

REACTIONS (3)
  - SECRETION DISCHARGE [None]
  - PHARYNGEAL OEDEMA [None]
  - PALATAL OEDEMA [None]
